FAERS Safety Report 10381315 (Version 1)
Quarter: 2014Q3

REPORT INFORMATION
  Report Type: Spontaneous
  Country: US (occurrence: None)
  Receive Date: 20140812
  Receipt Date: 20140812
  Transmission Date: 20150326
  Serious: No
  Sender: FDA-Public Use
  Company Number: None

PATIENT
  Sex: Female
  Weight: 52.4 kg

DRUGS (1)
  1. CLONIDINE ER [Suspect]
     Active Substance: CLONIDINE

REACTIONS (2)
  - Product substitution issue [None]
  - Treatment failure [None]
